FAERS Safety Report 4422534-6 (Version None)
Quarter: 2004Q3

REPORT INFORMATION
  Report Type: 
  Country: None (occurrence: None)
  Receive Date: 20040810
  Receipt Date: 20040727
  Transmission Date: 20050211
  Serious: Yes (Other)
  Sender: FDA-Public Use
  Company Number: PHBS2004BE10453

PATIENT
  Sex: Female

DRUGS (1)
  1. ERGOTAMINE TARTRATE [Suspect]
     Dosage: 2 MG, PRN
     Route: 054

REACTIONS (3)
  - DRUG EXPOSURE DURING PREGNANCY [None]
  - POLYHYDRAMNIOS [None]
  - PREGNANCY [None]
